FAERS Safety Report 5605966-X (Version None)
Quarter: 2008Q1

REPORT INFORMATION
  Report Type: 
  Country: None (occurrence: None)
  Receive Date: 20080123
  Receipt Date: 20080123
  Transmission Date: 20080703
  Serious: Yes (Other)
  Sender: FDA-Public Use
  Company Number: None

PATIENT
  Age: 79 Year
  Sex: Female
  Weight: 68.0396 kg

DRUGS (1)
  1. LISINOPRIL [Suspect]
     Indication: HYPERTENSION

REACTIONS (4)
  - DEMENTIA ALZHEIMER'S TYPE [None]
  - FALL [None]
  - PERSONALITY DISORDER [None]
  - SYNCOPE [None]
